FAERS Safety Report 4307488-5 (Version None)
Quarter: 2004Q1

REPORT INFORMATION
  Report Type: 
  Country: None (occurrence: None)
  Receive Date: 20040226
  Receipt Date: 20040213
  Transmission Date: 20041129
  Serious: Yes (Hospitalization)
  Sender: FDA-Public Use
  Company Number: FRP04000051

PATIENT
  Age: 71 Year
  Sex: Male

DRUGS (4)
  1. ACTONEL [Suspect]
     Dosage: ORAL
     Route: 048
     Dates: start: 20031031
  2. METHOTREXATE [Suspect]
     Indication: RHEUMATOID ARTHRITIS
     Dosage: 12.5 MG, 1/WEEK, ORAL
     Route: 048
     Dates: start: 20000515
  3. ENBREL [Suspect]
     Indication: RHEUMATOID ARTHRITIS
     Dosage: ORAL
     Route: 048
     Dates: start: 20031118, end: 20031121
  4. PREDNISONE [Suspect]
     Indication: RHEUMATOID ARTHRITIS
     Dosage: 5 MG, DAILY, ORAL
     Route: 048
     Dates: start: 20000515

REACTIONS (2)
  - EPILEPSY [None]
  - RESPIRATORY DISORDER [None]
